FAERS Safety Report 9844963 (Version 4)
Quarter: 2015Q1

REPORT INFORMATION
  Report Type: Spontaneous
  Country: US (occurrence: US)
  Receive Date: 20140127
  Receipt Date: 20140127
  Transmission Date: 20150721
  Serious: Yes (Other)
  Sender: FDA-Public Use
  Company Number: US-MYLANLABS-2014S1000988

PATIENT
  Age: 44 Year
  Sex: Male

DRUGS (17)
  1. TESTOSTERONE CIPIONATE [Suspect]
     Active Substance: TESTOSTERONE
     Indication: HYPOGONADISM
     Dosage: ONE EVERY 14 DAYS
     Route: 030
  2. PEGINTERFERON ALFA-2B [Concomitant]
     Active Substance: PEGINTERFERON ALFA-2B
     Indication: HEPATITIS C
     Route: 058
  3. DOXAZOSIN [Interacting]
     Active Substance: DOXAZOSIN\DOXAZOSIN MESYLATE
     Dosage: AT BEDTIME
     Route: 065
  4. RIBAVIRIN. [Concomitant]
     Active Substance: RIBAVIRIN
     Indication: HEPATITIS C
     Dosage: 400MG EVERY MORNING, 600MG EVERY EVENING
     Route: 065
  5. BOCEPREVIR [Interacting]
     Active Substance: BOCEPREVIR
     Indication: HEPATITIS C
     Route: 065
  6. QUETIAPINE [Interacting]
     Active Substance: QUETIAPINE
     Indication: AFFECTIVE DISORDER
     Dosage: 1-3 TABLETS OF 100MG EVERY EVENING
     Route: 065
  7. ONDANSETRON [Concomitant]
     Active Substance: ONDANSETRON
     Indication: NAUSEA
     Route: 065
  8. CODEINE W/GLYCERYL GUICULATE [Concomitant]
     Indication: COUGH
     Dosage: 15MG/5-10ML 4X DAILY AS NEEDED
     Route: 065
  9. LOPERAMIDE [Concomitant]
     Active Substance: LOPERAMIDE
     Indication: DIARRHOEA
     Dosage: 2MG AS NEEDED
     Route: 065
  10. TAMSULOSIN [Interacting]
     Active Substance: TAMSULOSIN
     Dosage: 0.4MG DAILY
     Route: 065
  11. ATRIPLA [Concomitant]
     Active Substance: EFAVIRENZ\EMTRICITABINE\TENOFOVIR DISOPROXIL FUMARATE
     Dosage: EFAVIRENZ 600MG/EMTRICITABINE 200MG/TENOFOVIR DISOPROXIL FUMARATE 300MG DAILY
     Route: 048
  12. CYCLOBENZAPRINE [Concomitant]
     Active Substance: CYCLOBENZAPRINE
     Indication: MUSCLE SPASMS
     Route: 065
  13. LITHIUM [Concomitant]
     Active Substance: LITHIUM CARBONATE
     Dosage: AT BEDTIME
     Route: 065
  14. NAPROXEN. [Concomitant]
     Active Substance: NAPROXEN
     Indication: PAIN
     Dosage: AS NEEDED
  15. LOSARTAN [Concomitant]
     Active Substance: LOSARTAN
     Dosage: 50MG DAILY
     Route: 065
  16. ESOMEPRAZOLE [Concomitant]
     Active Substance: ESOMEPRAZOLE
     Dosage: 40MG DAILY
     Route: 065
  17. OXYCODONE/APAP                     /01601701/ [Concomitant]
     Active Substance: ACETAMINOPHEN\OXYCODONE HYDROCHLORIDE
     Indication: PAIN
     Dosage: 5-325MG EVERY 6H AS NEEDED
     Route: 065

REACTIONS (4)
  - Vomiting [Unknown]
  - Drug interaction [Recovering/Resolving]
  - Nausea [Unknown]
  - Priapism [Recovering/Resolving]
